FAERS Safety Report 6938692-5 (Version None)
Quarter: 2010Q3

REPORT INFORMATION
  Report Type: 
  Country: None (occurrence: None)
  Receive Date: 20100824
  Receipt Date: 20100811
  Transmission Date: 20110219
  Serious: Yes (Other)
  Sender: FDA-Public Use
  Company Number: PHHY2010BR53080

PATIENT
  Sex: Male

DRUGS (2)
  1. DIOVAN [Suspect]
     Dosage: 2 TABLETS DAILY
  2. DIOVAN [Suspect]
     Dosage: 1 TABLETS DAILY

REACTIONS (3)
  - CEREBRAL ISCHAEMIA [None]
  - HEAD DISCOMFORT [None]
  - SOMNOLENCE [None]
